FAERS Safety Report 21865853 (Version 1)
Quarter: 2023Q1

REPORT INFORMATION
  Report Type: Spontaneous
  Country: DE (occurrence: DE)
  Receive Date: 20230116
  Receipt Date: 20230116
  Transmission Date: 20230418
  Serious: Yes (Hospitalization, Other)
  Sender: FDA-Public Use
  Company Number: DE-SA-2023SA012322

PATIENT
  Age: 57 Year
  Sex: Female

DRUGS (2)
  1. DUPILUMAB [Suspect]
     Active Substance: DUPILUMAB
     Indication: Asthma
  2. DUPILUMAB [Suspect]
     Active Substance: DUPILUMAB
     Indication: Chronic rhinosinusitis with nasal polyps

REACTIONS (13)
  - Eosinophilic granulomatosis with polyangiitis [Recovered/Resolved]
  - Eosinophilia [Recovered/Resolved]
  - Unmasking of previously unidentified disease [Recovered/Resolved]
  - Arthralgia [Recovered/Resolved]
  - Generalised oedema [Recovered/Resolved]
  - Purpura [Recovered/Resolved]
  - Dyspnoea [Recovered/Resolved]
  - Weight decreased [Recovered/Resolved]
  - Lung infiltration [Recovered/Resolved]
  - Mononeuropathy multiplex [Recovered/Resolved]
  - Renal failure [Recovered/Resolved]
  - Haematuria [Recovered/Resolved]
  - Diverticulitis [Recovered/Resolved]
